FAERS Safety Report 24636340 (Version 1)
Quarter: 2024Q4

REPORT INFORMATION
  Report Type: Report from Study
  Country: BR (occurrence: BR)
  Receive Date: 20241119
  Receipt Date: 20241119
  Transmission Date: 20250115
  Serious: Yes (Other)
  Sender: JOHNSON AND JOHNSON
  Company Number: BR-JNJFOC-20241128747

PATIENT
  Age: 15 Year
  Sex: Female
  Weight: 68 kg

DRUGS (1)
  1. INFLIXIMAB [Suspect]
     Active Substance: INFLIXIMAB
     Indication: Takayasu^s arteritis
     Dosage: TREATMENT STARTED 8 MONTHS AGO
     Route: 041
     Dates: start: 2024

REACTIONS (3)
  - Takayasu^s arteritis [Unknown]
  - Cerebrovascular accident [Unknown]
  - Off label use [Unknown]

NARRATIVE: CASE EVENT DATE: 20240101
